FAERS Safety Report 26180822 (Version 1)
Quarter: 2025Q4

REPORT INFORMATION
  Report Type: Spontaneous
  Country: US (occurrence: US)
  Receive Date: 20251221
  Receipt Date: 20251221
  Transmission Date: 20260118
  Serious: Yes (Other)
  Sender: Kenvue
  Company Number: US-KENVUE-20251205184

PATIENT
  Age: 63 Year
  Sex: Female

DRUGS (1)
  1. TYLENOL [Suspect]
     Active Substance: ACETAMINOPHEN
     Indication: Inflammatory pain
     Dosage: 1 DOSAGE FORM, SINGLE (USED ONE PILL ONLY)
     Route: 061
     Dates: start: 202512

REACTIONS (4)
  - Choking [Not Recovered/Not Resolved]
  - Incorrect dose administered [Unknown]
  - Illness [Not Recovered/Not Resolved]
  - Swelling face [Not Recovered/Not Resolved]

NARRATIVE: CASE EVENT DATE: 20251201
